FAERS Safety Report 8828320 (Version 1)
Quarter: 2012Q4

REPORT INFORMATION
  Report Type: Report from Study
  Country: CA (occurrence: CA)
  Receive Date: 20121005
  Receipt Date: 20121005
  Transmission Date: 20130627
  Serious: Yes (Hospitalization)
  Sender: FDA-Public Use
  Company Number: CA-CELGENEUS-028-C5013-10070626

PATIENT
  Age: 69 Year
  Sex: Male
  Weight: 55 kg

DRUGS (23)
  1. THALIDOMIDE [Suspect]
     Indication: MULTIPLE MYELOMA
     Dosage: 200 Milligram
     Route: 048
     Dates: start: 20090910
  2. THALIDOMIDE [Suspect]
     Dosage: 200 Milligram
     Route: 048
     Dates: start: 20100422, end: 20100602
  3. PREDNISONE [Suspect]
     Indication: MULTIPLE MYELOMA
     Dosage: 125 Milligram
     Route: 065
     Dates: start: 20090910
  4. PREDNISONE [Suspect]
     Dosage: 115 Milligram
     Route: 065
     Dates: start: 20100422
  5. MELPHALAN [Suspect]
     Indication: MULTIPLE MYELOMA
     Dosage: 8 Milligram
     Route: 065
     Dates: start: 20090910
  6. MELPHALAN [Suspect]
     Dosage: 2 Milligram
     Route: 065
     Dates: start: 20100422, end: 20100425
  7. TYLENOL #3 [Concomitant]
     Indication: PAIN
     Route: 048
     Dates: start: 20090910
  8. TYLENOL #3 [Concomitant]
     Dosage: 1-2
     Route: 048
  9. ASA [Concomitant]
     Indication: PROPHYLAXIS
     Dosage: 81 Milligram
     Route: 048
     Dates: start: 20090910
  10. ASA [Concomitant]
     Dosage: 81 Milligram
     Route: 048
     Dates: start: 20100705
  11. AMIODARONE [Concomitant]
     Indication: ATRIAL FIBRILLATION
     Dosage: 400 Milligram
     Route: 048
     Dates: start: 20100328
  12. NAUSEON [Concomitant]
     Indication: NAUSEA
     Dosage: 10 Milligram
     Route: 048
     Dates: start: 20100603
  13. STEMITEL [Concomitant]
     Indication: NAUSEA
     Dosage: 5 Milligram
     Route: 048
     Dates: start: 20100401, end: 20100408
  14. ZANTAC [Concomitant]
     Indication: NAUSEA
     Dosage: 150 Milligram
     Route: 048
     Dates: start: 20100603
  15. MEGACE [Concomitant]
     Indication: NAUSEA
     Dosage: 400 Milligram
     Route: 048
     Dates: start: 20100603
  16. NITRO [Concomitant]
     Indication: CHEST PAIN
     Dosage: .4 Milligram
     Route: 065
     Dates: start: 20100705
  17. ZOPICLONE [Concomitant]
     Indication: DRUG USE FOR UNKNOWN INDICATION
     Dosage: 7.5 Milligram
     Route: 048
     Dates: start: 201007
  18. GRAVOL [Concomitant]
     Indication: DRUG USE FOR UNKNOWN INDICATION
     Dosage: 12.5-25mg
     Route: 041
     Dates: start: 200610
  19. GRAVOL [Concomitant]
     Dosage: 12.5-25 mg
     Route: 041
     Dates: start: 20100706
  20. GRAVOL [Concomitant]
     Dosage: 25-50mg
     Route: 048
     Dates: start: 20100706
  21. MAXERAN [Concomitant]
     Indication: DRUG USE FOR UNKNOWN INDICATION
     Dosage: 10 Milligram
     Dates: start: 200610
  22. EUCERIN GLYCERIN [Concomitant]
     Indication: DRY SKIN
     Dosage: 10 Milligram
     Route: 061
  23. HEPARIN [Concomitant]
     Indication: DRUG USE FOR UNKNOWN INDICATION
     Dosage: 5000 IU (International Unit)
     Route: 058
     Dates: start: 20100706

REACTIONS (1)
  - Adenocarcinoma [Not Recovered/Not Resolved]
